FAERS Safety Report 6613927-7 (Version None)
Quarter: 2010Q1

REPORT INFORMATION
  Report Type: 
  Country: None (occurrence: None)
  Receive Date: 20100304
  Receipt Date: 20100225
  Transmission Date: 20100710
  Serious: Yes (Other)
  Sender: FDA-Public Use
  Company Number: B0626847A

PATIENT
  Sex: Female

DRUGS (2)
  1. ALKERAN [Suspect]
     Indication: CHEMOTHERAPY
     Dosage: 37.4MG PER DAY
     Route: 042
     Dates: start: 20091130
  2. THIOTEPA [Concomitant]
     Indication: CHEMOTHERAPY
     Dosage: 107MG PER DAY
     Dates: start: 20091130, end: 20091208

REACTIONS (1)
  - LEUKOENCEPHALOPATHY [None]
